FAERS Safety Report 15704894 (Version 2)
Quarter: 2019Q1

REPORT INFORMATION
  Report Type: Spontaneous
  Country: US (occurrence: US)
  Receive Date: 20181210
  Receipt Date: 20190219
  Transmission Date: 20190417
  Serious: Yes (Other)
  Sender: FDA-Public Use
  Company Number: US-SA-2018SA331685

PATIENT
  Age: 46 Year
  Sex: Female
  Weight: 58.96 kg

DRUGS (5)
  1. CYCLOPHOSPHAMIDE. [Concomitant]
     Active Substance: CYCLOPHOSPHAMIDE
     Route: 065
  2. NEOSAR [Concomitant]
     Active Substance: CYCLOPHOSPHAMIDE
     Route: 065
  3. TAXOTERE [Suspect]
     Active Substance: DOCETAXEL
     Indication: BREAST CANCER FEMALE
     Dosage: UNK UNK, Q3W
     Route: 042
     Dates: start: 20100513, end: 20100513
  4. TAXOTERE [Suspect]
     Active Substance: DOCETAXEL
     Dosage: UNK, Q3W
     Route: 042
     Dates: start: 20100826, end: 20100826
  5. ADRIAMYCIN [Concomitant]
     Active Substance: DOXORUBICIN HYDROCHLORIDE
     Route: 065

REACTIONS (2)
  - Alopecia [Recovering/Resolving]
  - Psychological trauma [Unknown]

NARRATIVE: CASE EVENT DATE: 20110226
